FAERS Safety Report 5727767-4 (Version None)
Quarter: 2008Q2

REPORT INFORMATION
  Report Type: 
  Country: None (occurrence: None)
  Receive Date: 20080505
  Receipt Date: 20080422
  Transmission Date: 20081010
  Serious: No
  Sender: FDA-Public Use
  Company Number: US-ELI_LILLY_AND_COMPANY-US200802006899

PATIENT
  Sex: Male

DRUGS (11)
  1. CYMBALTA [Suspect]
     Indication: NEUROPATHY PERIPHERAL
     Dosage: UNK, UNK
     Dates: start: 20070601, end: 20070101
  2. REQUIP [Concomitant]
     Indication: RESTLESS LEGS SYNDROME
  3. CHOLESTEROL- AND TRIGLYCERIDE REDUCERS [Concomitant]
  4. PERCOCET [Concomitant]
     Dosage: UNK, AS NEEDED
  5. LASIX [Concomitant]
     Dosage: 40 UNK, UNK
  6. IBUPROFEN TABLETS [Concomitant]
     Dosage: 600 UNK, UNK
  7. COREG [Concomitant]
  8. TRICOR [Concomitant]
  9. FLOMAX [Concomitant]
  10. SYNTHROID [Concomitant]
  11. TRAMADOL HCL [Concomitant]

REACTIONS (7)
  - ABNORMAL DREAMS [None]
  - BACK PAIN [None]
  - FALL [None]
  - JOINT DISLOCATION [None]
  - NIGHTMARE [None]
  - SLEEP DISORDER [None]
  - SPINAL COMPRESSION FRACTURE [None]
